FAERS Safety Report 5228305-5 (Version None)
Quarter: 2007Q1

REPORT INFORMATION
  Report Type: 
  Country: None (occurrence: None)
  Receive Date: 20070131
  Receipt Date: 20070131
  Transmission Date: 20070707
  Serious: Yes (Hospitalization)
  Sender: FDA-Public Use
  Company Number: None

PATIENT
  Age: 87 Year
  Sex: Male

DRUGS (16)
  1. EFFEXOR [Suspect]
     Dosage: 150 MG TID PO
     Route: 048
     Dates: start: 20061129, end: 20061130
  2. BENICAR [Concomitant]
  3. HYDROCHLOROTHIAZIDE [Concomitant]
  4. FLAGYL [Concomitant]
  5. FLOMAX [Concomitant]
  6. ASPIRIN [Concomitant]
  7. LIPITOR [Concomitant]
  8. PLAVIX [Concomitant]
  9. ZYRTEC [Concomitant]
  10. PROSCAR [Concomitant]
  11. POTASSIUM CHLORIDE [Concomitant]
  12. LASIX [Concomitant]
  13. SYNTHROID [Concomitant]
  14. TOPROL-XL [Concomitant]
  15. IMDUR [Concomitant]
  16. RESTORIL [Concomitant]

REACTIONS (5)
  - ASTHENIA [None]
  - BLOOD PRESSURE DECREASED [None]
  - DIZZINESS [None]
  - HEART RATE IRREGULAR [None]
  - VISION BLURRED [None]
